FAERS Safety Report 7390317-3 (Version None)
Quarter: 2011Q2

REPORT INFORMATION
  Report Type: 
  Country: None (occurrence: None)
  Receive Date: 20110401
  Receipt Date: 20110330
  Transmission Date: 20111010
  Serious: Yes (Hospitalization, Other)
  Sender: FDA-Public Use
  Company Number: FR-PFIZER INC-2011025477

PATIENT
  Age: 86 Year
  Sex: Male

DRUGS (5)
  1. SEROPLEX [Suspect]
     Dosage: 10 MG, 1X/DAY
     Route: 048
     Dates: start: 20100701, end: 20100922
  2. TAHOR [Suspect]
     Dosage: 10 MG, 1X/DAY
     Route: 048
     Dates: start: 20100701, end: 20100922
  3. SERESTA [Concomitant]
     Dosage: 10 MG, 1X/DAY
     Route: 048
     Dates: end: 20101001
  4. KARDEGIC [Concomitant]
     Dosage: 160 MG, 1X/DAY
     Route: 048
     Dates: start: 20100701
  5. MODOPAR [Concomitant]
     Dosage: 1 DF, 6X/DAY
     Route: 048

REACTIONS (6)
  - EOSINOPHILIA [None]
  - RASH [None]
  - BLOOD CREATINE INCREASED [None]
  - PRURITUS [None]
  - THROMBOCYTOPENIA [None]
  - POLLAKIURIA [None]
